FAERS Safety Report 9972943 (Version 1)
Quarter: 2014Q1

REPORT INFORMATION
  Report Type: Spontaneous
  Country: US (occurrence: US)
  Receive Date: 20140306
  Receipt Date: 20140306
  Transmission Date: 20141002
  Serious: Yes (Other)
  Sender: FDA-Public Use
  Company Number: US-PFIZER INC-2014060212

PATIENT
  Age: 64 Year
  Sex: Female
  Weight: 50.8 kg

DRUGS (1)
  1. PREMARIN [Suspect]
     Indication: ALBRIGHT^S DISEASE
     Dosage: 2.50 MG, 1X/DAY
     Route: 048
     Dates: start: 1971

REACTIONS (7)
  - Neoplasm skin [Unknown]
  - Neoplasm [Unknown]
  - Gastric neoplasm [Unknown]
  - Gastrointestinal neoplasm [Unknown]
  - Neoplasm malignant [Unknown]
  - Fungal infection [Unknown]
  - Tooth loss [Unknown]
